FAERS Safety Report 26008808 (Version 1)
Quarter: 2025Q4

REPORT INFORMATION
  Report Type: Spontaneous
  Country: US (occurrence: US)
  Receive Date: 20251106
  Receipt Date: 20251106
  Transmission Date: 20260117
  Serious: No
  Sender: NOVARTIS
  Company Number: US-002147023-NVSC2025US171701

PATIENT
  Age: 24 Year
  Sex: Female
  Weight: 83.91 kg

DRUGS (1)
  1. RHAPSIDO [Suspect]
     Active Substance: REMIBRUTINIB
     Indication: Chronic spontaneous urticaria
     Dosage: 25 MG, BID
     Route: 048
     Dates: start: 20251014

REACTIONS (3)
  - Nasal congestion [Unknown]
  - Swelling face [Unknown]
  - Oropharyngeal pain [Unknown]

NARRATIVE: CASE EVENT DATE: 20251102
